FAERS Safety Report 6396256-9 (Version None)
Quarter: 2009Q4

REPORT INFORMATION
  Report Type: 
  Country: None (occurrence: None)
  Receive Date: 20091012
  Receipt Date: 20091002
  Transmission Date: 20100525
  Serious: Yes (Hospitalization)
  Sender: FDA-Public Use
  Company Number: US-BIOGENIDEC-152617

PATIENT
  Age: 54 Year
  Sex: Female
  Weight: 97 kg

DRUGS (15)
  1. AVONEX [Suspect]
     Indication: MULTIPLE SCLEROSIS
     Route: 030
     Dates: start: 19960715, end: 20030101
  2. AVONEX [Suspect]
     Route: 030
     Dates: start: 20030101
  3. SINGULAIR [Concomitant]
     Indication: ASTHMA
  4. FLOVENT [Concomitant]
     Indication: ASTHMA
  5. ALBUTEROL [Concomitant]
     Indication: ASTHMA
  6. PROVENTIL-HFA [Concomitant]
     Indication: ASTHMA
  7. PREVACID [Concomitant]
     Indication: GASTRIC ULCER
  8. TRAZODONE [Concomitant]
     Indication: ANXIETY
     Dates: start: 19960101
  9. LASIX [Concomitant]
     Indication: OEDEMA
  10. PREMARIN [Concomitant]
     Indication: HORMONE REPLACEMENT THERAPY
  11. MULTI-VITAMINS [Concomitant]
     Indication: ROUTINE HEALTH MAINTENANCE
  12. MERIDIA [Concomitant]
     Indication: OBESITY
  13. AMANTADINE HCL [Concomitant]
     Indication: FATIGUE
  14. ZOCOR [Concomitant]
     Indication: BLOOD CHOLESTEROL
  15. NORFLEX [Concomitant]
     Indication: MUSCLE SPASMS
     Dates: start: 19980101

REACTIONS (9)
  - ARTHRITIS [None]
  - DEPRESSION [None]
  - DIZZINESS [None]
  - HEADACHE [None]
  - HYPERSENSITIVITY [None]
  - HYPERTENSION [None]
  - INSOMNIA [None]
  - MULTIPLE SCLEROSIS RELAPSE [None]
  - PARAESTHESIA ORAL [None]
